FAERS Safety Report 6199601-2 (Version None)
Quarter: 2009Q2

REPORT INFORMATION
  Report Type: 
  Country: None (occurrence: None)
  Receive Date: 20090522
  Receipt Date: 20090518
  Transmission Date: 20091009
  Serious: Yes (Hospitalization)
  Sender: FDA-Public Use
  Company Number: US-KINGPHARMUSA00001-K200900599

PATIENT
  Age: 65 Year
  Sex: Male

DRUGS (11)
  1. ALTACE [Suspect]
     Indication: HYPERTENSION
     Dosage: 5 MG, QD
     Route: 048
  2. TAXOTERE [Suspect]
     Indication: PROSTATE CANCER
     Dosage: 75 MG/M2, CYCLICAL
     Route: 042
     Dates: start: 20090310
  3. BISOPROLOL [Suspect]
     Indication: HYPERTENSION
     Dosage: 5 MG, QD
     Route: 048
  4. SEVREDOL [Suspect]
     Indication: ANALGESIA
     Dosage: UNK
     Route: 048
  5. LEVOTHYROXINE SODIUM [Concomitant]
     Indication: THYROID OPERATION
     Dosage: 100 MCG, UNK
     Route: 048
  6. PANTOZOL [Concomitant]
     Dosage: 40 MG, UNK
     Route: 048
  7. PARACETAMOL [Concomitant]
     Indication: ANALGESIA
     Dosage: 3000 MG, UNK
     Route: 048
  8. TRANSTEC [Concomitant]
     Indication: ANALGESIA
     Dosage: 52.5 UNK, UNK
     Route: 003
  9. METOCLOPRAMIDE [Concomitant]
     Indication: SUPPORTIVE CARE
     Dosage: UNK
     Route: 048
  10. CALCIUM [Concomitant]
     Dosage: UNK
     Route: 048
  11. NULYTELY [Concomitant]
     Indication: CONSTIPATION
     Dosage: UNK

REACTIONS (2)
  - BONE PAIN [None]
  - HYPOTENSION [None]
